FAERS Safety Report 4799967-1 (Version None)
Quarter: 2005Q4

REPORT INFORMATION
  Report Type: 
  Country: None (occurrence: None)
  Receive Date: 20051013
  Receipt Date: 20051006
  Transmission Date: 20060501
  Serious: Yes (Hospitalization)
  Sender: FDA-Public Use
  Company Number: 200510447BFR

PATIENT
  Age: 58 Year
  Sex: Female

DRUGS (1)
  1. MOXIFLOXACIN HYDROCHLORIDE [Suspect]
     Indication: EAR PAIN
     Dosage: 400 MG, QD, ORAL
     Route: 048
     Dates: start: 20050211, end: 20050215

REACTIONS (8)
  - DEPRESSION [None]
  - HYPOXIA [None]
  - OEDEMA DUE TO CARDIAC DISEASE [None]
  - ONYCHOMADESIS [None]
  - PULMONARY OEDEMA [None]
  - RESPIRATORY DISTRESS [None]
  - SERRATIA SEPSIS [None]
  - TOXIC EPIDERMAL NECROLYSIS [None]
